FAERS Safety Report 5407299-3 (Version None)
Quarter: 2007Q3

REPORT INFORMATION
  Report Type: 
  Country: None (occurrence: None)
  Receive Date: 20070807
  Receipt Date: 20070802
  Transmission Date: 20080115
  Serious: Yes (Hospitalization, Other)
  Sender: FDA-Public Use
  Company Number: BR-ASTRAZENECA-2007UW13106

PATIENT
  Age: 78 Year
  Sex: Male
  Weight: 68 kg

DRUGS (3)
  1. CRESTOR [Suspect]
     Indication: CAROTID ARTERY DISEASE
     Route: 048
     Dates: start: 20060901, end: 20070525
  2. PLAVIX [Concomitant]
     Indication: ISCHAEMIA
     Route: 048
     Dates: start: 20070401
  3. DIOVAN [Concomitant]
     Indication: HYPERTENSION
     Route: 048
     Dates: start: 19990101

REACTIONS (1)
  - STEVENS-JOHNSON SYNDROME [None]
